FAERS Safety Report 12074903 (Version 1)
Quarter: 2016Q1

REPORT INFORMATION
  Report Type: Spontaneous
  Country: US (occurrence: US)
  Receive Date: 20160212
  Receipt Date: 20160212
  Transmission Date: 20160526
  Serious: Yes (Other)
  Sender: FDA-Public Use
  Company Number: US-TEVA-634451USA

PATIENT
  Age: 11 Year
  Sex: Female

DRUGS (3)
  1. QUINIDINE [Suspect]
     Active Substance: QUINIDINE
     Indication: EPILEPSY
     Dosage: 11 MG/KG DAILY; EVENTUALLY THE DOSE WAS INCREASED TO 40MG/KG/DAY
     Route: 065
  2. QUINIDINE [Suspect]
     Active Substance: QUINIDINE
     Indication: EPILEPSY
     Dosage: 40 MG/KG DAILY; EVENTUALLY THE DOSE WAS INCREASED TO 54.2MICROG/KG/DAY
     Route: 065
  3. QUINIDINE [Suspect]
     Active Substance: QUINIDINE
     Indication: EPILEPSY
     Dosage: 54.2 MICROGRAM/KG DAILY; EVENTUALLY THE DOSE WAS DECREASED TO 34MG/KG/DAY
     Route: 065

REACTIONS (1)
  - Electrocardiogram QT prolonged [Unknown]
